APPROVED DRUG PRODUCT: HYDROXYZINE HYDROCHLORIDE
Active Ingredient: HYDROXYZINE HYDROCHLORIDE
Strength: 10MG
Dosage Form/Route: TABLET;ORAL
Application: A081149 | Product #001
Applicant: WATSON LABORATORIES INC
Approved: Mar 18, 1994 | RLD: No | RS: No | Type: DISCN